FAERS Safety Report 4503137-1 (Version None)
Quarter: 2004Q4

REPORT INFORMATION
  Report Type: 
  Country: None (occurrence: None)
  Receive Date: 20041117
  Receipt Date: 20040421
  Transmission Date: 20050328
  Serious: No
  Sender: FDA-Public Use
  Company Number: US-BRISTOL-MYERS SQUIBB COMPANY-12567772

PATIENT
  Sex: Male

DRUGS (1)
  1. VEPESID [Suspect]
     Indication: LUNG NEOPLASM MALIGNANT

REACTIONS (1)
  - HYPERSENSITIVITY [None]
